FAERS Safety Report 21596337 (Version 1)
Quarter: 2022Q4

REPORT INFORMATION
  Report Type: Spontaneous
  Country: DE (occurrence: None)
  Receive Date: 20221115
  Receipt Date: 20221115
  Transmission Date: 20230113
  Serious: Yes (Disabling, Congenital Anomaly)
  Sender: FDA-Public Use
  Company Number: 2022A367859

PATIENT
  Age: 0 Year
  Sex: Male
  Weight: 2.7 kg

DRUGS (4)
  1. BUDESONIDE [Suspect]
     Active Substance: BUDESONIDE
     Indication: Asthma
     Route: 055
     Dates: start: 20210611, end: 20220309
  2. BIOFANAL [Concomitant]
     Indication: Vulvovaginal mycotic infection
     Dosage: 600000 [IE/D (3X200000, + CREME) ]/ GW 9+5 TIL GW10+1 ANDGW 18+6 UNTIL GW 19+1
     Dates: start: 20210818, end: 20211023
  3. ACETAMINOPHEN [Concomitant]
     Active Substance: ACETAMINOPHEN
     Indication: Pyrexia
     Dosage: 250 [MG/D ]
     Dates: start: 20220210, end: 20220210
  4. CLOTRIMAZOLE [Concomitant]
     Active Substance: CLOTRIMAZOLE
     Indication: Vulvovaginal mycotic infection
     Dosage: 200 [MG/D (+ CREME) ]
     Dates: start: 20211026, end: 20211028

REACTIONS (2)
  - Cataract congenital [Unknown]
  - Foetal exposure during pregnancy [Unknown]
